FAERS Safety Report 8305531-X (Version None)
Quarter: 2012Q2

REPORT INFORMATION
  Report Type: 
  Country: None (occurrence: None)
  Receive Date: 20120423
  Receipt Date: 20120415
  Transmission Date: 20120825
  Serious: Yes (Other)
  Sender: FDA-Public Use
  Company Number: JP-GLAXOSMITHKLINE-B0796997A

PATIENT
  Age: 35 Year
  Sex: Male

DRUGS (8)
  1. DEPAS [Suspect]
     Dosage: 1MG PER DAY
     Route: 048
  2. HALCION [Suspect]
     Route: 048
  3. AMITRIPTYLINE HCL [Suspect]
     Dosage: 50MG PER DAY
     Route: 048
  4. PAROXETINE HCL [Suspect]
     Dosage: 80MG PER DAY
     Route: 048
  5. BARBITURATES [Suspect]
     Dosage: 2IUAX PER DAY
     Route: 048
  6. FAMOTIDINE [Suspect]
     Dosage: 20MG PER DAY
     Route: 048
  7. LENDORMIN [Suspect]
     Dosage: 2IUAX PER DAY
     Route: 048
  8. ROHYPNOL [Suspect]
     Dosage: 2MG PER DAY
     Route: 048

REACTIONS (7)
  - AGGRESSION [None]
  - DISINHIBITION [None]
  - NEUROSIS [None]
  - ALTERED STATE OF CONSCIOUSNESS [None]
  - MULTIPLE DRUG OVERDOSE [None]
  - MEMORY IMPAIRMENT [None]
  - DELIRIUM [None]
